FAERS Safety Report 12997619 (Version 1)
Quarter: 2016Q4

REPORT INFORMATION
  Report Type: Spontaneous
  Country: GR (occurrence: GR)
  Receive Date: 20161205
  Receipt Date: 20161205
  Transmission Date: 20170207
  Serious: Yes (Hospitalization)
  Sender: FDA-Public Use
  Company Number: GR-SA-2016SA218387

PATIENT
  Sex: Male
  Weight: 75 kg

DRUGS (11)
  1. BACTRIMEL [Concomitant]
     Active Substance: SULFAMETHOXAZOLE\TRIMETHOPRIM
     Dates: start: 20130516
  2. FIBRINOGEN [Concomitant]
     Active Substance: FIBRINOGEN HUMAN
  3. VALACICLOVIR [Concomitant]
     Active Substance: VALACYCLOVIR HYDROCHLORIDE
     Dates: start: 20130516
  4. OMEPRAZOLE. [Concomitant]
     Active Substance: OMEPRAZOLE
     Dates: start: 20130516
  5. DIGOXIN. [Concomitant]
     Active Substance: DIGOXIN
     Dates: start: 20130516, end: 20130528
  6. DIPHENHYDRAMINE. [Concomitant]
     Active Substance: DIPHENHYDRAMINE
     Dates: start: 20130516, end: 20130516
  7. METFORMIN [Concomitant]
     Active Substance: METFORMIN HYDROCHLORIDE
     Dates: start: 1996
  8. RINGER-LAKTAT [Concomitant]
     Dates: start: 20130516, end: 20130520
  9. PLAVIX [Suspect]
     Active Substance: CLOPIDOGREL BISULFATE
     Route: 048
  10. PARACETAMOL [Concomitant]
     Active Substance: ACETAMINOPHEN
     Dates: start: 20130516, end: 20130516
  11. METOPROLOL. [Concomitant]
     Active Substance: METOPROLOL
     Dates: start: 20130516, end: 20130531

REACTIONS (2)
  - Dysarthria [Recovered/Resolved]
  - Depressed level of consciousness [Recovered/Resolved]

NARRATIVE: CASE EVENT DATE: 20130516
